FAERS Safety Report 7821864-5 (Version None)
Quarter: 2011Q4

REPORT INFORMATION
  Report Type: 
  Country: None (occurrence: None)
  Receive Date: 20111018
  Receipt Date: 20101019
  Transmission Date: 20120403
  Serious: No
  Sender: FDA-Public Use
  Company Number: US-ASTRAZENECA-2010SE49396

PATIENT
  Age: 68 Year
  Sex: Male

DRUGS (2)
  1. SYMBICORT [Suspect]
     Dosage: 160/4.5 MCG TWO PUFFS TWICE A DAY
     Route: 055
  2. SYMBICORT [Suspect]
     Indication: ASTHMA
     Dosage: 80/4.5 MCG TWO PUFFS TWICE A DAY
     Route: 055

REACTIONS (3)
  - ANXIETY [None]
  - TOTAL LUNG CAPACITY DECREASED [None]
  - BRONCHITIS [None]
